FAERS Safety Report 10503021 (Version 1)
Quarter: 2014Q4

REPORT INFORMATION
  Report Type: Spontaneous
  Country: GB (occurrence: GB)
  Receive Date: 20141007
  Receipt Date: 20141007
  Transmission Date: 20150528
  Serious: Yes (Death)
  Sender: FDA-Public Use
  Company Number: PHHY2014GB130322

PATIENT
  Age: 38 Year
  Sex: Male

DRUGS (1)
  1. PARACETAMOL [Suspect]
     Active Substance: ACETAMINOPHEN
     Indication: OVERDOSE
     Dosage: 25 G, UNK
     Route: 048

REACTIONS (8)
  - Ecchymosis [Fatal]
  - Pneumonia [None]
  - Jaundice [Fatal]
  - Overdose [Fatal]
  - Confusional state [Fatal]
  - Sepsis [Fatal]
  - Intracranial pressure increased [Fatal]
  - Hostility [Fatal]
